FAERS Safety Report 8491048-9 (Version None)
Quarter: 2012Q3

REPORT INFORMATION
  Report Type: 
  Country: None (occurrence: None)
  Receive Date: 20120706
  Receipt Date: 20120628
  Transmission Date: 20120928
  Serious: Yes (Other)
  Sender: FDA-Public Use
  Company Number: US-BAYER-2012-012171

PATIENT
  Age: 31 Year
  Sex: Female
  Weight: 63.492 kg

DRUGS (10)
  1. ALEVE [Concomitant]
     Dosage: UNK UNK, PRN
     Dates: start: 19860101
  2. ALBUTEROL [Concomitant]
     Dosage: UNK
     Dates: start: 20070830, end: 20090526
  3. YASMIN [Suspect]
     Dosage: UNK
     Dates: start: 20060701, end: 20080801
  4. IBUPROFEN (ADVIL) [Concomitant]
     Dosage: UNK UNK, PRN
     Dates: start: 19860101
  5. ALBUTEROL [Concomitant]
     Indication: ASTHMA
     Dosage: 90 MCG, 1 PUFF EVERY 4 HRS, PRN
     Dates: start: 19950101
  6. NAPRALENE [Concomitant]
     Dosage: 375 QD
  7. YAZ [Suspect]
     Indication: MENSTRUAL CYCLE MANAGEMENT
     Dosage: UNK
     Dates: start: 20060501, end: 20060630
  8. DROSPIRENONE AND ETHINYL ESTRADIOL [Suspect]
     Indication: MENSTRUAL CYCLE MANAGEMENT
     Dosage: UNK
     Dates: start: 20080801, end: 20081101
  9. YASMIN [Suspect]
     Indication: MENSTRUAL CYCLE MANAGEMENT
     Dosage: UNK
     Dates: start: 20020101, end: 20060501
  10. ASCORBIC ACID [Concomitant]
     Dosage: UNK UNK, PRN
     Dates: start: 19930101

REACTIONS (7)
  - DEEP VEIN THROMBOSIS [None]
  - PAIN [None]
  - INJURY [None]
  - GAIT DISTURBANCE [None]
  - ANXIETY [None]
  - ANHEDONIA [None]
  - PSYCHOLOGICAL TRAUMA [None]
